FAERS Safety Report 7403104-4 (Version None)
Quarter: 2011Q2

REPORT INFORMATION
  Report Type: 
  Country: None (occurrence: None)
  Receive Date: 20110408
  Receipt Date: 20110322
  Transmission Date: 20111010
  Serious: No
  Sender: FDA-Public Use
  Company Number: US-NOVEN-11US002045

PATIENT
  Sex: Male

DRUGS (1)
  1. FENTANYL [Suspect]
     Indication: PAIN
     Dosage: 100 UG, Q72H
     Route: 062
     Dates: start: 20101201

REACTIONS (2)
  - INADEQUATE ANALGESIA [None]
  - APPLICATION SITE ERYTHEMA [None]
